FAERS Safety Report 7539596-X (Version None)
Quarter: 2011Q2

REPORT INFORMATION
  Report Type: 
  Country: None (occurrence: None)
  Receive Date: 20110610
  Receipt Date: 20110131
  Transmission Date: 20111010
  Serious: Yes (Hospitalization, Other)
  Sender: FDA-Public Use
  Company Number: US-BAYER-201038305NA

PATIENT
  Age: 41 Year
  Sex: Female
  Weight: 126.98 kg

DRUGS (6)
  1. DROSPIRENONE AND ETHINYL ESTRADIOL [Suspect]
  2. ADVIL LIQUI-GELS [Concomitant]
  3. LISINOPRIL AND HYDROCHLOROTHIAZIDE [Concomitant]
     Indication: BLOOD PRESSURE MANAGEMENT
     Dosage: UNK
     Dates: start: 20021201
  4. YAZ [Suspect]
  5. ZANTAC [Concomitant]
     Indication: REFLUX OESOPHAGITIS
  6. YASMIN [Suspect]
     Indication: ACNE
     Dosage: UNK
     Dates: start: 20021229, end: 20030101

REACTIONS (1)
  - DEEP VEIN THROMBOSIS [None]
